FAERS Safety Report 10012109 (Version 1)
Quarter: 2014Q1

REPORT INFORMATION
  Report Type: Spontaneous
  Country: US (occurrence: None)
  Receive Date: 20140313
  Receipt Date: 20140313
  Transmission Date: 20141002
  Serious: Yes (Hospitalization)
  Sender: FDA-Public Use
  Company Number: None

PATIENT
  Age: 8 Year
  Sex: Female
  Weight: 25.8 kg

DRUGS (4)
  1. DOXORUBICIN HYDROCHLORIDE [Suspect]
  2. ETOPOSIDE (VP-16) [Suspect]
  3. IFOSFAMIDE [Suspect]
  4. CYCLOPHOSPHAMIDE [Suspect]

REACTIONS (2)
  - Acute myeloid leukaemia [None]
  - Leukaemia [None]
